FAERS Safety Report 23016420 (Version 2)
Quarter: 2023Q4

REPORT INFORMATION
  Report Type: Spontaneous
  Country: JP (occurrence: JP)
  Receive Date: 20231002
  Receipt Date: 20231002
  Transmission Date: 20240109
  Serious: Yes (Other)
  Sender: FDA-Public Use
  Company Number: JP-SAKK-01782159

PATIENT

DRUGS (1)
  1. AMARYL [Suspect]
     Active Substance: GLIMEPIRIDE
     Indication: Product used for unknown indication
     Route: 048

REACTIONS (3)
  - Hyperkalaemia [Unknown]
  - Glomerular filtration rate abnormal [Unknown]
  - Blood glucose abnormal [Unknown]
